FAERS Safety Report 8609415-9 (Version None)
Quarter: 2012Q3

REPORT INFORMATION
  Report Type: 
  Country: None (occurrence: None)
  Receive Date: 20120821
  Receipt Date: 20120807
  Transmission Date: 20120928
  Serious: No
  Sender: FDA-Public Use
  Company Number: US-ASTRAZENECA-2011SE48690

PATIENT
  Age: 49 Year
  Sex: Female
  Weight: 46.3 kg

DRUGS (1)
  1. SEROQUEL [Suspect]
     Indication: BIPOLAR DISORDER
     Route: 048

REACTIONS (6)
  - INSOMNIA [None]
  - APHAGIA [None]
  - DRUG DOSE OMISSION [None]
  - DELUSIONAL DISORDER, UNSPECIFIED TYPE [None]
  - MANIA [None]
  - PARANOIA [None]
